FAERS Safety Report 10334704 (Version 1)
Quarter: 2014Q3

REPORT INFORMATION
  Report Type: Spontaneous
  Country: US (occurrence: None)
  Receive Date: 20140721
  Receipt Date: 20140721
  Transmission Date: 20150326
  Serious: Yes (Other)
  Sender: FDA-Public Use
  Company Number: None

PATIENT
  Age: 74 Year
  Sex: Female
  Weight: 77.11 kg

DRUGS (1)
  1. ECONAZOLE NITRATE CREAM 1% [Suspect]
     Active Substance: ECONAZOLE NITRATE
     Indication: FUNGAL INFECTION
     Dosage: APPLY ONCE DAILY?ONCE DAILY?APPLIED TO A SURFACE, USUALLY THE SKIN
     Route: 061
     Dates: start: 20140716, end: 20140717

REACTIONS (1)
  - Application site pain [None]

NARRATIVE: CASE EVENT DATE: 20140716
